FAERS Safety Report 9203118 (Version 1)
Quarter: 2013Q1

REPORT INFORMATION
  Report Type: Spontaneous
  Country: IT (occurrence: None)
  Receive Date: 20130328
  Receipt Date: 20130328
  Transmission Date: 20140127
  Serious: Yes (Other)
  Sender: FDA-Public Use
  Company Number: AUR-APL-2013-02415

PATIENT
  Age: 61 Year
  Sex: Male

DRUGS (1)
  1. RAMIPRIL (RAMIPRIL) [Suspect]
     Indication: HYPERTENSION
     Dosage: (5 MG, 1 D) ORAL
     Route: 048
     Dates: start: 20130305, end: 20130308

REACTIONS (2)
  - Tongue oedema [None]
  - Hypersensitivity [None]
